FAERS Safety Report 21745748 (Version 1)
Quarter: 2022Q4

REPORT INFORMATION
  Report Type: Report from Study
  Country: US (occurrence: US)
  Receive Date: 20221219
  Receipt Date: 20221219
  Transmission Date: 20230112
  Serious: Yes (Other)
  Sender: FDA-Public Use
  Company Number: US-ABBVIE-4240797

PATIENT
  Sex: Female

DRUGS (1)
  1. HUMIRA [Suspect]
     Active Substance: ADALIMUMAB
     Indication: Psoriasis
     Dosage: STRENGTH:40MG
     Route: 058

REACTIONS (6)
  - Loss of consciousness [Unknown]
  - Extrasystoles [Unknown]
  - Onycholysis [Unknown]
  - Hand fracture [Unknown]
  - Fall [Unknown]
  - Hypertension [Unknown]
